FAERS Safety Report 8763269 (Version 1)
Quarter: 2012Q4

REPORT INFORMATION
  Report Type: 
  Country: US (occurrence: US)
  Receive Date: 20120831
  Receipt Date: 20120831
  Transmission Date: 20130627
  Serious: Yes (Hospitalization)
  Sender: FDA-Public Use
  Company Number: US-SANOFI-AVENTIS-2012SA060352

PATIENT
  Age: 40 Year
  Sex: Male

DRUGS (2)
  1. LANTUS [Suspect]
     Indication: TYPE I DIABETES MELLITUS
     Dosage: Dose:60 unit(s)
     Route: 058
     Dates: start: 2007
  2. SOLOSTAR [Suspect]
     Indication: TYPE I DIABETES MELLITUS
     Dates: start: 2007

REACTIONS (1)
  - Coronary artery disease [Not Recovered/Not Resolved]
